FAERS Safety Report 18629725 (Version 1)
Quarter: 2020Q4

REPORT INFORMATION
  Report Type: Spontaneous
  Country: FR (occurrence: FR)
  Receive Date: 20201217
  Receipt Date: 20201217
  Transmission Date: 20210114
  Serious: Yes (Life-Threatening)
  Sender: FDA-Public Use
  Company Number: FR-009507513-2012FRA005418

PATIENT
  Age: 56 Year
  Sex: Female

DRUGS (12)
  1. PERINDOPRIL [Concomitant]
     Active Substance: PERINDOPRIL
     Indication: HYPERTENSION
     Route: 048
  2. LETROZOLE. [Concomitant]
     Active Substance: LETROZOLE
     Indication: BREAST CANCER
     Route: 048
  3. TAHOR [Concomitant]
     Active Substance: ATORVASTATIN CALCIUM
     Indication: CARDIOVASCULAR DISORDER
     Dosage: 1 PICOGRAM, QD
     Route: 048
  4. METFORMIN [Suspect]
     Active Substance: METFORMIN HYDROCHLORIDE
     Indication: TYPE 2 DIABETES MELLITUS
     Route: 048
     Dates: end: 20170531
  5. KARDEGIC [Concomitant]
     Active Substance: ASPIRIN DL-LYSINE
     Indication: CARDIOVASCULAR DISORDER
     Dosage: 1 DOSAGE FORM, QD
     Route: 048
  6. PANTOPRAZOLE [Concomitant]
     Active Substance: PANTOPRAZOLE
     Indication: GASTRIC ULCER
     Dosage: 1 DOSAGE FORM, QD
     Route: 042
  7. DEROXAT [Concomitant]
     Active Substance: PAROXETINE HYDROCHLORIDE
     Indication: DEPRESSION
     Route: 048
  8. JANUMET [Suspect]
     Active Substance: METFORMIN HYDROCHLORIDE\SITAGLIPTIN PHOSPHATE
     Indication: TYPE 2 DIABETES MELLITUS
     Route: 048
     Dates: end: 20170531
  9. GAVISCON (ALUMINUM HYDROXIDE (+) CALCIUM CARBONATE (+) SODIUM ALGINATE [Concomitant]
     Active Substance: ALUMINUM HYDROXIDE \CALCIUM CARBONATE\SODIUM ALGINATE\SODIUM BICARBONATE
     Indication: GASTROOESOPHAGEAL REFLUX DISEASE
     Route: 048
  10. LYRICA [Concomitant]
     Active Substance: PREGABALIN
     Indication: ANXIETY
     Dosage: 2 DOSAGE FORM, QD
     Route: 048
  11. TARDYFERON B9 (FERROUS SULFATE (+) FOLIC ACID) [Concomitant]
     Active Substance: FERROUS SULFATE\FOLIC ACID
     Indication: IRON DEFICIENCY ANAEMIA
     Route: 048
  12. DIAMICRON [Concomitant]
     Active Substance: GLICLAZIDE
     Indication: TYPE 2 DIABETES MELLITUS
     Route: 048
     Dates: end: 20170531

REACTIONS (3)
  - Acute kidney injury [Recovered/Resolved]
  - Accidental overdose [Recovered/Resolved]
  - Lactic acidosis [Recovered/Resolved]

NARRATIVE: CASE EVENT DATE: 20170531
